FAERS Safety Report 10750538 (Version 1)
Quarter: 2015Q1

REPORT INFORMATION
  Report Type: Spontaneous
  Country: US (occurrence: US)
  Receive Date: 20150130
  Receipt Date: 20150130
  Transmission Date: 20150721
  Serious: No
  Sender: FDA-Public Use
  Company Number: US-009507513-1501USA011993

PATIENT
  Age: 20 Year
  Sex: Female
  Weight: 67.57 kg

DRUGS (2)
  1. NEXPLANON [Suspect]
     Active Substance: ETONOGESTREL
     Indication: CONTRACEPTION
     Dosage: 1 ROD / ONCE EVERY THREE YEARS
     Route: 059
     Dates: start: 20150107, end: 201501
  2. NEXPLANON [Suspect]
     Active Substance: ETONOGESTREL
     Dosage: 1 ROD / ONCE EVERY THREE YEARS
     Route: 059
     Dates: start: 201501

REACTIONS (4)
  - Application site pain [Not Recovered/Not Resolved]
  - Implant site erythema [Not Recovered/Not Resolved]
  - Product quality issue [Unknown]
  - Device difficult to use [Recovered/Resolved]

NARRATIVE: CASE EVENT DATE: 20150107
